FAERS Safety Report 17862683 (Version 1)
Quarter: 2020Q2

REPORT INFORMATION
  Report Type: Spontaneous
  Country: BR (occurrence: BR)
  Receive Date: 20200605
  Receipt Date: 20200605
  Transmission Date: 20200714
  Serious: Yes (Other)
  Sender: FDA-Public Use
  Company Number: BR-CELLTRION INC.-2020BR022837

PATIENT

DRUGS (3)
  1. REMSIMA [Suspect]
     Active Substance: INFLIXIMAB
     Indication: PRODUCT USED FOR UNKNOWN INDICATION
     Dosage: CYCLIC - EVERY 8 WEEKS
     Route: 065
     Dates: start: 201909
  2. REMSIMA [Suspect]
     Active Substance: INFLIXIMAB
     Dosage: CYCLIC - EVERY 6 WEEKS
     Route: 065
  3. REMSIMA [Suspect]
     Active Substance: INFLIXIMAB
     Dosage: CYCLIC - EVERY 4 WEEKS
     Route: 065

REACTIONS (2)
  - Haematochezia [Unknown]
  - Drug ineffective [Unknown]

NARRATIVE: CASE EVENT DATE: 20200511
